FAERS Safety Report 18158334 (Version 1)
Quarter: 2020Q3

REPORT INFORMATION
  Report Type: Spontaneous
  Country: CN (occurrence: CN)
  Receive Date: 20200817
  Receipt Date: 20200817
  Transmission Date: 20201103
  Serious: Yes (Other)
  Sender: FDA-Public Use
  Company Number: CN-ASTRAZENECA-2020SF02828

PATIENT
  Age: 15672 Day
  Sex: Female
  Weight: 67 kg

DRUGS (1)
  1. NEXIUM [Suspect]
     Active Substance: ESOMEPRAZOLE MAGNESIUM
     Indication: GASTROOESOPHAGEAL REFLUX DISEASE
     Route: 048
     Dates: start: 20200801, end: 20200804

REACTIONS (7)
  - Pruritus [Unknown]
  - Back pain [Unknown]
  - Chest pain [Recovering/Resolving]
  - Pain [Unknown]
  - Mobility decreased [Unknown]
  - Abdominal distension [Unknown]
  - Pain in extremity [Unknown]

NARRATIVE: CASE EVENT DATE: 20200804
